FAERS Safety Report 7734871-8 (Version None)
Quarter: 2011Q3

REPORT INFORMATION
  Report Type: 
  Country: None (occurrence: None)
  Receive Date: 20110907
  Receipt Date: 20110801
  Transmission Date: 20111222
  Serious: No
  Sender: FDA-Public Use
  Company Number: US-TYCO HEALTHCARE/MALLINCKRODT-T201101515

PATIENT
  Age: 71 Year
  Sex: Male

DRUGS (6)
  1. LYRICA [Concomitant]
     Dosage: 75 MG, TID
     Route: 048
  2. CELEBREX [Concomitant]
     Indication: PAIN
     Dosage: 200 MG, BID
     Route: 048
  3. DILAUDID [Concomitant]
     Indication: BREAKTHROUGH PAIN
     Dosage: 2 MG, UNK
     Route: 048
  4. SIMVASTATIN [Concomitant]
     Indication: BLOOD CHOLESTEROL INCREASED
     Dosage: UNK
  5. MORPHINE [Concomitant]
     Indication: PAIN
     Dosage: UNK
  6. EXALGO [Suspect]
     Indication: NEURALGIA
     Dosage: 8 MG, QD
     Route: 048
     Dates: start: 20110501, end: 20110728

REACTIONS (9)
  - COUGH [None]
  - RHINORRHOEA [None]
  - DIZZINESS [None]
  - NERVOUSNESS [None]
  - DRY THROAT [None]
  - ARTHRALGIA [None]
  - HYPERHIDROSIS [None]
  - AFFECT LABILITY [None]
  - INSOMNIA [None]
